FAERS Safety Report 6524695-1 (Version None)
Quarter: 2009Q4

REPORT INFORMATION
  Report Type: 
  Country: None (occurrence: None)
  Receive Date: 20091231
  Receipt Date: 20091231
  Transmission Date: 20100525
  Serious: Yes (Hospitalization)
  Sender: FDA-Public Use
  Company Number: None

PATIENT
  Sex: Male
  Weight: 53.0709 kg

DRUGS (3)
  1. CARBOPLATIN [Suspect]
     Indication: NON-SMALL CELL LUNG CANCER
     Dosage: 500 MG IV D1,2,3 Q21 DAYS IV
     Route: 042
     Dates: start: 20091221, end: 20091221
  2. ETOPOSIDE [Suspect]
     Indication: NON-SMALL CELL LUNG CANCER
     Dosage: 80MG/M2 D1,2,3 Q 21 DAYS I.V.
     Route: 042
     Dates: start: 20091221, end: 20091222
  3. RAD001 [Suspect]
     Indication: NON-SMALL CELL LUNG CANCER
     Dosage: 2.5MG DAILY P.O.
     Route: 048
     Dates: start: 20091221, end: 20091222

REACTIONS (5)
  - AXILLARY VEIN THROMBOSIS [None]
  - DEEP VEIN THROMBOSIS [None]
  - EMBOLISM [None]
  - JUGULAR VEIN THROMBOSIS [None]
  - SUBCLAVIAN VEIN THROMBOSIS [None]
